FAERS Safety Report 6221919-5 (Version None)
Quarter: 2009Q2

REPORT INFORMATION
  Report Type: 
  Country: None (occurrence: None)
  Receive Date: 20090611
  Receipt Date: 20071214
  Transmission Date: 20091009
  Serious: Yes (Other)
  Sender: FDA-Public Use
  Company Number: US-ASTRAZENECA-2006UW27474

PATIENT
  Age: 641 Month
  Sex: Male
  Weight: 134.3 kg

DRUGS (34)
  1. SEROQUEL [Suspect]
     Indication: ANXIETY
     Route: 048
     Dates: start: 20031008
  2. SEROQUEL [Suspect]
     Indication: DEPRESSION
     Route: 048
     Dates: start: 20031008
  3. SEROQUEL [Suspect]
     Indication: SLEEP DISORDER
     Route: 048
     Dates: start: 20031008
  4. SEROQUEL [Suspect]
     Indication: INSOMNIA
     Route: 048
     Dates: start: 20031008
  5. SEROQUEL [Suspect]
     Route: 048
     Dates: start: 20051109
  6. SEROQUEL [Suspect]
     Route: 048
     Dates: start: 20051109
  7. SEROQUEL [Suspect]
     Route: 048
     Dates: start: 20051109
  8. SEROQUEL [Suspect]
     Route: 048
     Dates: start: 20051109
  9. SEROQUEL [Suspect]
     Dosage: 25-100MG
     Route: 048
     Dates: start: 20060309
  10. SEROQUEL [Suspect]
     Dosage: 25-100MG
     Route: 048
     Dates: start: 20060309
  11. SEROQUEL [Suspect]
     Dosage: 25-100MG
     Route: 048
     Dates: start: 20060309
  12. SEROQUEL [Suspect]
     Dosage: 25-100MG
     Route: 048
     Dates: start: 20060309
  13. SEROQUEL [Suspect]
     Dosage: 300 TO 600 MG
     Route: 048
     Dates: start: 20050901, end: 20060830
  14. SEROQUEL [Suspect]
     Dosage: 300 TO 600 MG
     Route: 048
     Dates: start: 20050901, end: 20060830
  15. SEROQUEL [Suspect]
     Dosage: 300 TO 600 MG
     Route: 048
     Dates: start: 20050901, end: 20060830
  16. SEROQUEL [Suspect]
     Dosage: 300 TO 600 MG
     Route: 048
     Dates: start: 20050901, end: 20060830
  17. ABILIFY [Concomitant]
  18. ZYPREXA [Concomitant]
     Dates: start: 19990101
  19. WELLBUTRIN [Concomitant]
     Dates: start: 20030109
  20. WELLBUTRIN [Concomitant]
     Dates: start: 20040901
  21. VISTARIL [Concomitant]
     Route: 048
     Dates: start: 20020314
  22. VISTARIL [Concomitant]
     Route: 048
     Dates: start: 20010725
  23. VISTARIL [Concomitant]
     Dates: start: 20040617
  24. HYDROXYZINE PAMOATE [Concomitant]
     Dates: start: 20031130
  25. TRICOR [Concomitant]
     Dates: start: 20030209
  26. AVALIDE [Concomitant]
     Dosage: 300/12.5MG
     Route: 048
     Dates: start: 20051213
  27. TRAZODONE HCL [Concomitant]
     Dates: start: 20020522
  28. TRAZODONE HCL [Concomitant]
     Dates: start: 20050117
  29. PERCOCET [Concomitant]
     Dosage: 5/325
     Route: 048
     Dates: start: 20040428
  30. LEXAPRO [Concomitant]
     Route: 048
     Dates: start: 20040422
  31. PRINIVIL [Concomitant]
     Dates: start: 20020314
  32. TYLENOL (CAPLET) [Concomitant]
     Dates: start: 20040616
  33. CYMBALTA [Concomitant]
     Dates: start: 20060309
  34. GLUCOTROL [Concomitant]
     Route: 048
     Dates: start: 20060706

REACTIONS (5)
  - BLOOD CHOLESTEROL INCREASED [None]
  - BLOOD TRIGLYCERIDES INCREASED [None]
  - DIABETIC COMPLICATION [None]
  - PENILE PROSTHESIS USER [None]
  - TYPE 2 DIABETES MELLITUS [None]
